FAERS Safety Report 9896850 (Version 2)
Quarter: 2014Q4

REPORT INFORMATION
  Report Type: Spontaneous
  Country: FR (occurrence: FR)
  Receive Date: 20140214
  Receipt Date: 20141010
  Transmission Date: 20150529
  Serious: Yes (Hospitalization, Other)
  Sender: FDA-Public Use
  Company Number: FR-AMGEN-FRASP2014009996

PATIENT
  Age: 64 Year
  Sex: Female

DRUGS (6)
  1. ENBREL [Suspect]
     Active Substance: ETANERCEPT
     Indication: PSORIATIC ARTHROPATHY
     Dosage: 50 MG, WEEKLY
     Route: 058
     Dates: start: 201206, end: 201212
  2. COAPROVEL [Concomitant]
     Active Substance: HYDROCHLOROTHIAZIDE\IRBESARTAN
     Dosage: 300MG/ 25MG 1 DF, 1X/DAY
     Route: 048
  3. NOVONORM [Concomitant]
     Active Substance: REPAGLINIDE
     Dosage: 0.5 MG, 2X/DAY
     Route: 048
  4. GLUCOPHAGE [Concomitant]
     Active Substance: METFORMIN HYDROCHLORIDE
     Dosage: 1000 MG, 2X/DAY
     Route: 048
  5. INEXIUM                            /01479302/ [Concomitant]
     Active Substance: ESOMEPRAZOLE MAGNESIUM
     Dosage: 40 MG, 1X/DAY
     Route: 048
  6. MOTILIUM ^BYK GULDEN^ [Concomitant]
     Dosage: 10 MG, 3X/DAY
     Route: 048

REACTIONS (10)
  - Night sweats [Recovered/Resolved]
  - Aortitis [Recovered/Resolved]
  - Aplastic anaemia [Unknown]
  - Red blood cell sedimentation rate increased [Unknown]
  - Asthenia [Recovered/Resolved]
  - Nausea [Recovered/Resolved]
  - Weight decreased [Recovered/Resolved]
  - Vasculitis [Recovering/Resolving]
  - Iron deficiency [Unknown]
  - Vomiting [Recovered/Resolved]

NARRATIVE: CASE EVENT DATE: 2012
